FAERS Safety Report 21668391 (Version 2)
Quarter: 2022Q4

REPORT INFORMATION
  Report Type: Spontaneous
  Country: KR (occurrence: KR)
  Receive Date: 20221201
  Receipt Date: 20221205
  Transmission Date: 20230112
  Serious: Yes (Other)
  Sender: FDA-Public Use
  Company Number: KR-SA-SAC20221128001156

PATIENT
  Sex: Male

DRUGS (1)
  1. LANTUS SOLOSTAR [Suspect]
     Active Substance: INSULIN GLARGINE
     Indication: Diabetes mellitus
     Dosage: 25 IU, QD
     Route: 058
     Dates: start: 202211

REACTIONS (4)
  - Blindness [Unknown]
  - Asthenia [Recovering/Resolving]
  - Diabetic retinopathy [Unknown]
  - Blood glucose increased [Recovering/Resolving]
